FAERS Safety Report 14700366 (Version 1)
Quarter: 2018Q1

REPORT INFORMATION
  Report Type: Other
  Country: IT (occurrence: IT)
  Receive Date: 20180330
  Receipt Date: 20180330
  Transmission Date: 20180509
  Serious: Yes (Other)
  Sender: FDA-Public Use
  Company Number: IT-GLENMARK PHARMACEUTICALS-2018GMK033793

PATIENT

DRUGS (1)
  1. VORICONAZOLE. [Suspect]
     Active Substance: VORICONAZOLE
     Indication: PROPHYLAXIS
     Dosage: UNK
     Route: 065
     Dates: start: 2017, end: 2018

REACTIONS (5)
  - Febrile neutropenia [Unknown]
  - Interstitial lung disease [Unknown]
  - Pulmonary function test decreased [Recovering/Resolving]
  - Aspergillus test positive [Unknown]
  - Cough [Unknown]

NARRATIVE: CASE EVENT DATE: 20171204
